FAERS Safety Report 9768318 (Version 1)
Quarter: 2013Q4

REPORT INFORMATION
  Report Type: Spontaneous
  Country: IT (occurrence: IT)
  Receive Date: 20131217
  Receipt Date: 20131217
  Transmission Date: 20140711
  Serious: Yes (Death, Other)
  Sender: FDA-Public Use
  Company Number: PHHY2013IT144850

PATIENT
  Age: 77 Year
  Sex: Male

DRUGS (3)
  1. 5-FLUOROURACIL [Suspect]
     Indication: COLON CANCER METASTATIC
     Dosage: UNK
     Dates: start: 201201
  2. IRINOTECAN [Suspect]
     Indication: COLON CANCER METASTATIC
     Dates: start: 201201
  3. FOLINIC ACID [Suspect]
     Indication: COLON CANCER METASTATIC
     Dates: start: 201201

REACTIONS (4)
  - Death [Fatal]
  - Thrombotic thrombocytopenic purpura [Fatal]
  - Colon cancer metastatic [Unknown]
  - Malignant neoplasm progression [Unknown]
